FAERS Safety Report 6573954-5 (Version None)
Quarter: 2010Q1

REPORT INFORMATION
  Report Type: 
  Country: None (occurrence: None)
  Receive Date: 20100204
  Receipt Date: 20100204
  Transmission Date: 20100710
  Serious: No
  Sender: FDA-Public Use
  Company Number: None

PATIENT
  Age: 52 Year
  Sex: Male
  Weight: 60.4 kg

DRUGS (3)
  1. MIRTAZAPINE [Suspect]
     Indication: DEPRESSION
     Dosage: 15 MG AT BEDTIME PO
     Route: 048
     Dates: start: 20091006, end: 20091009
  2. SULFAMETHOXAZOLE AND TRIMETHOPRIM [Suspect]
     Indication: BRONCHITIS
     Dosage: 800/160 MG BID PO
     Route: 048
     Dates: start: 20091005, end: 20091014
  3. SULFAMETHOXAZOLE AND TRIMETHOPRIM [Suspect]
     Indication: UPPER RESPIRATORY TRACT INFECTION
     Dosage: 800/160 MG BID PO
     Route: 048
     Dates: start: 20091005, end: 20091014

REACTIONS (8)
  - DRY SKIN [None]
  - ERYTHEMA MULTIFORME [None]
  - EYE SWELLING [None]
  - HAEMORRHAGE [None]
  - PHOTOSENSITIVITY REACTION [None]
  - SKIN EXFOLIATION [None]
  - SKIN HYPERPIGMENTATION [None]
  - URTICARIA [None]
